FAERS Safety Report 18189908 (Version 1)
Quarter: 2020Q3

REPORT INFORMATION
  Report Type: Spontaneous
  Country: US (occurrence: US)
  Receive Date: 20200824
  Receipt Date: 20200824
  Transmission Date: 20201103
  Serious: Yes (Other)
  Sender: FDA-Public Use
  Company Number: US-FRESENIUS KABI-FK202008558

PATIENT
  Age: 34 Year
  Sex: Female

DRUGS (4)
  1. FOLLITROPIN ALFA [Suspect]
     Active Substance: FOLLITROPIN
     Indication: OOCYTE HARVEST
     Route: 065
  2. CHORIONIC GONADOTROPIN [Suspect]
     Active Substance: CHORIOGONADOTROPIN ALFA
     Indication: OOCYTE HARVEST
     Route: 065
  3. MENOTROPHIN [Suspect]
     Active Substance: MENOTROPINS
     Indication: OOCYTE HARVEST
     Dosage: 75/75U AT BEDTIME
     Route: 065
  4. CETRORELIX ACETATE [Suspect]
     Active Substance: CETRORELIX ACETATE
     Indication: OOCYTE HARVEST
     Route: 065

REACTIONS (2)
  - Hypomania [Recovered/Resolved]
  - Mania [Recovered/Resolved]
